FAERS Safety Report 10219775 (Version 4)
Quarter: 2014Q3

REPORT INFORMATION
  Report Type: Report from Study
  Country: FR (occurrence: FR)
  Receive Date: 20140605
  Receipt Date: 20140723
  Transmission Date: 20150326
  Serious: Yes (Hospitalization)
  Sender: FDA-Public Use
  Company Number: FR-VERTEX PHARMACEUTICALS INC-AE-2011-000173

PATIENT
  Age: 48 Year
  Sex: Male
  Weight: 72 kg

DRUGS (6)
  1. VX-950 (TELAPREVIR) [Suspect]
     Active Substance: TELAPREVIR
     Indication: HEPATITIS C
     Dosage: 750 MG, TID
     Route: 048
     Dates: start: 20110221, end: 2011
  2. PEGASYS [Suspect]
     Active Substance: PEGINTERFERON ALFA-2A
     Indication: HEPATITIS C
     Dosage: 180 ?G, QW
     Route: 058
     Dates: start: 20110221
  3. LEVOCARNIL [Concomitant]
     Active Substance: LEVOCARNITINE
     Indication: MYALGIA
     Dosage: 1 DF, QD
     Route: 048
     Dates: start: 20110131
  4. COPEGUS [Suspect]
     Active Substance: RIBAVIRIN
     Indication: HEPATITIS C
     Dosage: 1000 MG, QD
     Route: 048
     Dates: start: 20110221
  5. TOCO [Concomitant]
     Active Substance: UNSPECIFIED INGREDIENT
     Indication: INSULIN RESISTANCE
     Dosage: 1000 MG, QD
     Route: 048
     Dates: start: 20101129
  6. ELTROMBOPAG [Concomitant]
     Active Substance: ELTROMBOPAG
     Indication: THROMBOCYTOPENIA
     Dosage: 25 MG, QD
     Route: 065
     Dates: start: 20110416

REACTIONS (7)
  - Asthenia [Recovered/Resolved]
  - Pancreatitis acute [Not Recovered/Not Resolved]
  - Anaemia [Recovered/Resolved]
  - Weight decreased [Recovered/Resolved]
  - Neutropenia [Recovered/Resolved]
  - Epistaxis [Unknown]
  - Thrombocytopenia [Not Recovered/Not Resolved]

NARRATIVE: CASE EVENT DATE: 20110321
